FAERS Safety Report 4574434-9 (Version None)
Quarter: 2005Q1

REPORT INFORMATION
  Report Type: 
  Country: None (occurrence: None)
  Receive Date: 20050204
  Receipt Date: 20050124
  Transmission Date: 20050727
  Serious: Yes (Life-Threatening, Hospitalization, Other)
  Sender: FDA-Public Use
  Company Number: 2004106631

PATIENT
  Age: 78 Year
  Sex: Female

DRUGS (10)
  1. BEXTRA [Suspect]
     Indication: ARTHRALGIA
     Dosage: 10 MG (10 MG, 1 IN 1 D), ORAL
     Route: 048
     Dates: start: 20041025, end: 20041116
  2. BEXTRA [Suspect]
     Indication: OSTEOARTHRITIS
     Dosage: 10 MG (10 MG, 1 IN 1 D), ORAL
     Route: 048
     Dates: start: 20041025, end: 20041116
  3. SPIRONOLACTONE [Suspect]
     Indication: OEDEMA PERIPHERAL
     Dates: start: 20020718
  4. PROPRANOLOL HCL [Concomitant]
  5. TOCOPHEROL (TOCOPHEROL) [Concomitant]
  6. MULTIVITAMINS (ASCORBIC ACID, ERGOCALCIFEROL, FOLIC ACID, NICOTINAMIDE [Concomitant]
  7. CALCIUM (CALCIUM) [Concomitant]
  8. ATORVASTATIN (ATORVASTATIN) [Concomitant]
  9. ACETYLSALICYLIC ACID SRT [Concomitant]
  10. RISEDRONATE SODIUM (RISEDRONATE SODIUM) [Concomitant]

REACTIONS (8)
  - ASTHENIA [None]
  - CARDIAC MURMUR [None]
  - DIFFICULTY IN WALKING [None]
  - FATIGUE [None]
  - HYPERKALAEMIA [None]
  - HYPOMAGNESAEMIA [None]
  - HYPOVOLAEMIA [None]
  - RENAL FAILURE ACUTE [None]
